FAERS Safety Report 12136257 (Version 1)
Quarter: 2016Q1

REPORT INFORMATION
  Report Type: Spontaneous
  Country: US (occurrence: None)
  Receive Date: 20160301
  Receipt Date: 20160301
  Transmission Date: 20160526
  Serious: No
  Sender: FDA-Public Use
  Company Number: None

PATIENT
  Age: 65 Year
  Sex: Female

DRUGS (1)
  1. IBRANCE [Suspect]
     Active Substance: PALBOCICLIB
     Indication: PRODUCT USED FOR UNKNOWN INDICATION
     Dates: start: 20151123, end: 20160226

REACTIONS (5)
  - Chest pain [None]
  - Dizziness [None]
  - Rectal haemorrhage [None]
  - Abasia [None]
  - Epistaxis [None]

NARRATIVE: CASE EVENT DATE: 20160225
